FAERS Safety Report 8245110-6 (Version None)
Quarter: 2012Q1

REPORT INFORMATION
  Report Type: 
  Country: None (occurrence: None)
  Receive Date: 20120329
  Receipt Date: 20120326
  Transmission Date: 20120608
  Serious: Yes (Life-Threatening, Hospitalization)
  Sender: FDA-Public Use
  Company Number: SA-GLAXOSMITHKLINE-B0790099A

PATIENT
  Sex: Female
  Weight: 58 kg

DRUGS (2)
  1. LAPATINIB [Suspect]
     Indication: NEOPLASM MALIGNANT
     Dosage: 1250MG PER DAY
     Route: 048
     Dates: start: 20111115
  2. CAPECITABINE [Suspect]
     Indication: NEOPLASM MALIGNANT
     Dosage: 1500MG TWICE PER DAY
     Route: 048
     Dates: start: 20111115

REACTIONS (1)
  - SEPSIS [None]
